FAERS Safety Report 8606834 (Version 3)
Quarter: 2013Q4

REPORT INFORMATION
  Report Type: Spontaneous
  Country: US (occurrence: US)
  Receive Date: 20120611
  Receipt Date: 20131129
  Transmission Date: 20140711
  Serious: Yes (Hospitalization)
  Sender: FDA-Public Use
  Company Number: US-ASTRAZENECA-2012SE35237

PATIENT
  Age: 42 Year
  Sex: Male

DRUGS (12)
  1. NEXIUM [Suspect]
     Indication: GASTRIC DISORDER
     Dosage: ONCE A DAY
     Route: 048
  2. OMEPRAZOLE [Suspect]
     Route: 048
  3. PROTONIX [Concomitant]
     Indication: GASTRIC DISORDER
     Dosage: 1 A DAY
  4. TUMS [Concomitant]
     Indication: DYSPEPSIA
     Dosage: ONE OR TWICE A WEEK
  5. ROLAIDS [Concomitant]
     Indication: DYSPEPSIA
     Dosage: ONE OR TWICE A WEEK
  6. HYDROCODONE [Concomitant]
     Indication: PAIN
     Dosage: 5.5-500
  7. METHOCARBAMOL [Concomitant]
     Indication: MYALGIA
     Dates: start: 20110509
  8. TRAMADOL [Concomitant]
     Dates: start: 20100823
  9. ZANTAC [Concomitant]
     Dates: start: 20100823
  10. ZANTAC [Concomitant]
     Dates: start: 20110623
  11. CYCLOBENZAPR [Concomitant]
     Dates: start: 20100824
  12. DEXILANT [Concomitant]
     Dates: start: 20101022

REACTIONS (6)
  - Spinal disorder [Unknown]
  - Cervical vertebral fracture [Unknown]
  - Staphylococcal infection [Unknown]
  - Osteoporosis [Unknown]
  - Polyarthritis [Unknown]
  - Photosensitivity reaction [Unknown]
